FAERS Safety Report 8477627-3 (Version None)
Quarter: 2012Q2

REPORT INFORMATION
  Report Type: 
  Country: None (occurrence: None)
  Receive Date: 20120618
  Receipt Date: 20120613
  Transmission Date: 20120825
  Serious: Yes (Life-Threatening, Hospitalization)
  Sender: FDA-Public Use
  Company Number: 2012SP028936

PATIENT
  Age: 48 Year
  Sex: Male

DRUGS (8)
  1. ROPIVACAINE HYDROCHLORIDE [Suspect]
     Indication: NEUROMUSCULAR BLOCKADE
     Dosage: 40 MG;ONCE;IV
     Route: 042
     Dates: start: 20100617, end: 20100617
  2. DIPRIVAN [Suspect]
     Indication: INDUCTION OF ANAESTHESIA
     Dosage: 200 MG;ONCE;IV ; 100 MG;ONCE ; 100 MG;ONCE;IV
     Route: 042
     Dates: start: 20100617, end: 20100617
  3. DIPRIVAN [Suspect]
     Indication: INDUCTION OF ANAESTHESIA
     Dosage: 200 MG;ONCE;IV ; 100 MG;ONCE ; 100 MG;ONCE;IV
     Route: 042
  4. DIPRIVAN [Suspect]
     Indication: INDUCTION OF ANAESTHESIA
     Dosage: 200 MG;ONCE;IV ; 100 MG;ONCE ; 100 MG;ONCE;IV
     Route: 042
     Dates: start: 20100617, end: 20100617
  5. LYRICA [Suspect]
     Indication: ANAESTHETIC PREMEDICATION
     Dosage: 150 MG;ONCE;PO
     Route: 048
     Dates: start: 20100617, end: 20100617
  6. SUFENTA PRESERVATIVE FREE [Suspect]
     Indication: GAIT DISTURBANCE
     Dosage: 50 MCG;ONCE;IV
     Route: 042
     Dates: start: 20100617, end: 20100617
  7. ATARAX [Suspect]
     Indication: ANAESTHETIC PREMEDICATION
     Dosage: 50 MG;ONCE;PO
     Route: 048
     Dates: start: 20100617, end: 20100617
  8. ROCURONIUM BROMIDE [Suspect]
     Indication: INDUCTION OF ANAESTHESIA
     Dosage: 50 MG;ONCE;IV
     Route: 042
     Dates: start: 20100617, end: 20100617

REACTIONS (4)
  - MYOCARDIAL INFARCTION [None]
  - CARDIO-RESPIRATORY ARREST [None]
  - ANAPHYLACTIC SHOCK [None]
  - APPARENT LIFE THREATENING EVENT [None]
